FAERS Safety Report 23437611 (Version 1)
Quarter: 2024Q1

REPORT INFORMATION
  Report Type: Spontaneous
  Country: US (occurrence: None)
  Receive Date: 20240123
  Receipt Date: 20240123
  Transmission Date: 20240410
  Serious: Yes (Disabling)
  Sender: FDA-Public Use
  Company Number: None

PATIENT
  Age: 63 Year
  Sex: Male
  Weight: 81 kg

DRUGS (7)
  1. TAMSULOSIN [Suspect]
     Active Substance: TAMSULOSIN
     Indication: Benign prostatic hyperplasia
     Dosage: OTHER QUANTITY : 1 CAPSULE(S);?FREQUENCY : AT BEDTIME;?
     Dates: start: 20221113, end: 20231215
  2. TAMSULOSIN [Suspect]
     Active Substance: TAMSULOSIN
  3. DULIXETINE [Concomitant]
  4. WELLBUTRIN [Concomitant]
     Active Substance: BUPROPION HYDROCHLORIDE
  5. METFORMIN [Concomitant]
     Active Substance: METFORMIN HYDROCHLORIDE
  6. OZEMPIC [Concomitant]
     Active Substance: SEMAGLUTIDE
  7. BERBERINE [Concomitant]
     Active Substance: BERBERINE

REACTIONS (4)
  - Orthostatic hypotension [None]
  - Loss of consciousness [None]
  - Fall [None]
  - Humerus fracture [None]

NARRATIVE: CASE EVENT DATE: 20231215
